FAERS Safety Report 11871411 (Version 1)
Quarter: 2015Q4

REPORT INFORMATION
  Report Type: Spontaneous
  Country: US (occurrence: None)
  Receive Date: 20151224
  Receipt Date: 20151224
  Transmission Date: 20160305
  Serious: Yes (Hospitalization)
  Sender: FDA-Public Use
  Company Number: None

PATIENT
  Age: 22 Year
  Sex: Female

DRUGS (1)
  1. LEVOFLOXACIN. [Suspect]
     Active Substance: LEVOFLOXACIN
     Indication: URINARY TRACT INFECTION
     Route: 042
     Dates: start: 20150924, end: 20150924

REACTIONS (4)
  - Drug hypersensitivity [None]
  - Dyspnoea [None]
  - Infusion site rash [None]
  - Cough [None]

NARRATIVE: CASE EVENT DATE: 20150924
